FAERS Safety Report 6811581-2 (Version None)
Quarter: 2010Q3

REPORT INFORMATION
  Report Type: 
  Country: None (occurrence: None)
  Receive Date: 20100701
  Receipt Date: 20100623
  Transmission Date: 20110219
  Serious: Yes (Death, Other)
  Sender: FDA-Public Use
  Company Number: US-BIOGENIDEC-2010BI003429

PATIENT
  Age: 54 Year
  Sex: Female

DRUGS (3)
  1. AVONEX [Suspect]
     Indication: MULTIPLE SCLEROSIS
     Route: 030
     Dates: start: 20100101
  2. AVONEX [Suspect]
     Route: 030
     Dates: start: 20030606, end: 20060101
  3. AVONEX [Suspect]
     Route: 030

REACTIONS (3)
  - BREAST CANCER [None]
  - LUNG SQUAMOUS CELL CARCINOMA STAGE I [None]
  - THYROID CANCER [None]
